FAERS Safety Report 6860006-X (Version None)
Quarter: 2010Q3

REPORT INFORMATION
  Report Type: 
  Country: None (occurrence: None)
  Receive Date: 20100720
  Receipt Date: 20100708
  Transmission Date: 20110219
  Serious: Yes (Other)
  Sender: FDA-Public Use
  Company Number: JP-PFIZER INC-2010088551

PATIENT

DRUGS (1)
  1. ARGATROBAN [Suspect]
     Indication: ARTERIOSCLEROSIS OBLITERANS
     Dosage: UNK
     Route: 010
     Dates: end: 20100708

REACTIONS (1)
  - LOSS OF CONSCIOUSNESS [None]
